FAERS Safety Report 6218267-6 (Version None)
Quarter: 2009Q2

REPORT INFORMATION
  Report Type: 
  Country: None (occurrence: None)
  Receive Date: 20090608
  Receipt Date: 20090602
  Transmission Date: 20091009
  Serious: Yes (Hospitalization, Other)
  Sender: FDA-Public Use
  Company Number: US-BIOGENIDEC-2009BI014912

PATIENT
  Sex: Female
  Weight: 53 kg

DRUGS (18)
  1. AVONEX [Suspect]
     Indication: MULTIPLE SCLEROSIS
     Route: 030
     Dates: start: 20020514, end: 20070317
  2. AVONEX [Suspect]
     Route: 030
     Dates: start: 20080522
  3. ALIGN PROBIOTIC SUPPLIMENT DIGESTIVE CARE [Concomitant]
     Route: 048
  4. AMITIZA [Concomitant]
     Route: 048
  5. CALCET [Concomitant]
  6. CALCIUM [Concomitant]
     Route: 048
  7. DETROL LA [Concomitant]
     Route: 048
  8. DICYCLOMINE HCL [Concomitant]
     Route: 048
  9. FIBERCON [Concomitant]
     Route: 048
  10. FOSAMAX [Concomitant]
     Route: 048
  11. GLYCOLAX [Concomitant]
  12. HYOSCYAMINE SULFATE [Concomitant]
     Route: 048
  13. LANOXIN [Concomitant]
     Route: 048
  14. NAPROXEN [Concomitant]
     Route: 048
  15. NEXIUM [Concomitant]
     Route: 048
  16. TOPROL XI [Concomitant]
     Route: 048
  17. TRAMADOL HCL [Concomitant]
  18. TRAZODONE HCL [Concomitant]
     Route: 048

REACTIONS (4)
  - ABNORMAL LOSS OF WEIGHT [None]
  - SUPRAVENTRICULAR TACHYCARDIA [None]
  - TACHYARRHYTHMIA [None]
  - WOLFF-PARKINSON-WHITE SYNDROME [None]
